FAERS Safety Report 18555549 (Version 1)
Quarter: 2020Q4

REPORT INFORMATION
  Report Type: Spontaneous
  Country: US (occurrence: US)
  Receive Date: 20201127
  Receipt Date: 20201127
  Transmission Date: 20210114
  Serious: Yes (Other)
  Sender: FDA-Public Use
  Company Number: US-NOVOPROD-746827

PATIENT
  Age: 74 Year
  Sex: Female

DRUGS (3)
  1. NOVOLIN N [Suspect]
     Active Substance: INSULIN HUMAN
     Indication: DIABETES MELLITUS
     Dosage: 50 IU, BID(50 UNITS IN AM AND 50 UNITS IN THE PM)
     Route: 058
     Dates: start: 2005
  2. NOVOLIN N [Suspect]
     Active Substance: INSULIN HUMAN
     Dosage: 40 UNITS PER DOSE
     Route: 058
  3. NOVOLOG [Concomitant]
     Active Substance: INSULIN ASPART
     Indication: PRODUCT USED FOR UNKNOWN INDICATION
     Dosage: UNK
     Route: 065

REACTIONS (6)
  - Blood glucose decreased [Recovered/Resolved]
  - Blood glucose decreased [Recovered/Resolved]
  - Blood glucose increased [Unknown]
  - Hypoglycaemic unconsciousness [Recovered/Resolved]
  - Blood glucose decreased [Recovered/Resolved]
  - Product quality issue [Unknown]

NARRATIVE: CASE EVENT DATE: 20200729
